FAERS Safety Report 8601266-4 (Version None)
Quarter: 2012Q3

REPORT INFORMATION
  Report Type: 
  Country: None (occurrence: None)
  Receive Date: 20120817
  Receipt Date: 20120810
  Transmission Date: 20120928
  Serious: Yes (Other)
  Sender: FDA-Public Use
  Company Number: PHEH2012US015911

PATIENT

DRUGS (6)
  1. ZOMETA [Suspect]
     Dosage: 4 MG, Q3MO
  2. ALTEPLASE [Concomitant]
  3. DEXAMETHASONE [Concomitant]
  4. ONDANSETRON [Concomitant]
  5. ZOMETA [Suspect]
     Dosage: 4 MG, QMO
  6. BORTEZOMIB [Concomitant]

REACTIONS (12)
  - BONE FRAGMENTATION [None]
  - MULTIPLE MYELOMA [None]
  - OSTEONECROSIS OF JAW [None]
  - OROPHARYNGEAL PLAQUE [None]
  - MOUTH HAEMORRHAGE [None]
  - EXPOSED BONE IN JAW [None]
  - BONE LOSS [None]
  - GINGIVITIS [None]
  - GINGIVAL PAIN [None]
  - EXCESSIVE GRANULATION TISSUE [None]
  - MALAISE [None]
  - TOOTH ABSCESS [None]
